FAERS Safety Report 6870067-X (Version None)
Quarter: 2010Q3

REPORT INFORMATION
  Report Type: 
  Country: None (occurrence: None)
  Receive Date: 20100722
  Receipt Date: 20100714
  Transmission Date: 20110219
  Serious: Yes (Death, Hospitalization, Other)
  Sender: FDA-Public Use
  Company Number: US-PFIZER INC-2010034267

PATIENT
  Sex: Female
  Weight: 110.2 kg

DRUGS (4)
  1. REVATIO [Suspect]
     Indication: PULMONARY ARTERIAL HYPERTENSION
     Dosage: 40 MG, 3X/DAY
     Route: 048
     Dates: start: 20041226
  2. BUMEX [Suspect]
     Indication: PULMONARY HYPERTENSION
     Dosage: 4 MG/3 MG, 2X/DAY
     Dates: start: 20091001
  3. BUMEX [Suspect]
     Indication: CARDIAC FAILURE
  4. TRACLEER [Concomitant]
     Dosage: 125 MG, 2X/DAY

REACTIONS (4)
  - ALTERED STATE OF CONSCIOUSNESS [None]
  - BLOOD CREATININE INCREASED [None]
  - RENAL FAILURE [None]
  - SHOULDER OPERATION [None]
